FAERS Safety Report 7148706-8 (Version None)
Quarter: 2010Q4

REPORT INFORMATION
  Report Type: 
  Country: None (occurrence: None)
  Receive Date: 20101209
  Receipt Date: 20101130
  Transmission Date: 20110411
  Serious: Yes (Death, Hospitalization)
  Sender: FDA-Public Use
  Company Number: CO-ROCHE-745034

PATIENT
  Sex: Female

DRUGS (1)
  1. CELLCEPT [Suspect]
     Dosage: FREQUENCY: QD
     Route: 048
     Dates: start: 20100828, end: 20101001

REACTIONS (1)
  - RENAL FAILURE [None]
